FAERS Safety Report 6225690-2 (Version None)
Quarter: 2009Q2

REPORT INFORMATION
  Report Type: 
  Country: None (occurrence: None)
  Receive Date: 20090612
  Receipt Date: 20090428
  Transmission Date: 20091009
  Serious: No
  Sender: FDA-Public Use
  Company Number: US-ABBOTT-09P-163-0570877-00

PATIENT
  Sex: Female
  Weight: 76.272 kg

DRUGS (2)
  1. HUMIRA [Suspect]
     Indication: CROHN'S DISEASE
     Route: 058
     Dates: start: 20081108, end: 20090215
  2. ASACOL [Suspect]
     Indication: CROHN'S DISEASE
     Route: 048
     Dates: start: 20090201, end: 20090424

REACTIONS (16)
  - BLISTER [None]
  - BLOOD URINE PRESENT [None]
  - BUTTERFLY RASH [None]
  - CHEST PAIN [None]
  - COLONIC STENOSIS [None]
  - COLONOSCOPY ABNORMAL [None]
  - DRUG INEFFECTIVE [None]
  - ERYTHEMA [None]
  - GASTROINTESTINAL INFLAMMATION [None]
  - HAEMORRHAGE [None]
  - HEADACHE [None]
  - PHOTOSENSITIVITY REACTION [None]
  - SKIN LACERATION [None]
  - SWELLING FACE [None]
  - SYSTEMIC LUPUS ERYTHEMATOSUS [None]
  - URINE OUTPUT DECREASED [None]
